FAERS Safety Report 5073553-0 (Version None)
Quarter: 2006Q3

REPORT INFORMATION
  Report Type: 
  Country: None (occurrence: None)
  Receive Date: 20060717
  Receipt Date: 20060103
  Transmission Date: 20061208
  Serious: No
  Sender: FDA-Public Use
  Company Number: 2006000018

PATIENT
  Sex: Female

DRUGS (3)
  1. TARCEVA [Suspect]
     Indication: NON-SMALL CELL LUNG CANCER
     Dosage: 150 MG (QD), ORAL
     Route: 048
     Dates: start: 20050901
  2. URSODIOL (URSODEOXYCHOLIC ACID) [Concomitant]
  3. SYNTHROID [Concomitant]

REACTIONS (5)
  - ACNE [None]
  - DIARRHOEA [None]
  - HIRSUTISM [None]
  - HYPOTRICHOSIS [None]
  - MADAROSIS [None]
